FAERS Safety Report 11384708 (Version 1)
Quarter: 2015Q3

REPORT INFORMATION
  Report Type: Spontaneous
  Country: US (occurrence: US)
  Receive Date: 20150811
  Receipt Date: 20150811
  Transmission Date: 20151125
  Serious: No
  Sender: FDA-Public Use
  Company Number: US-ELI_LILLY_AND_COMPANY-US201108000447

PATIENT
  Age: 72 Year
  Sex: Female
  Weight: 66.21 kg

DRUGS (5)
  1. CARDIZEM [Concomitant]
     Active Substance: DILTIAZEM HYDROCHLORIDE
  2. DIURETICS [Concomitant]
     Active Substance: UNSPECIFIED INGREDIENT
  3. ADCIRCA [Suspect]
     Active Substance: TADALAFIL
  4. KLONOPIN [Concomitant]
     Active Substance: CLONAZEPAM
     Dosage: UNK
  5. TREPROSTINIL [Concomitant]
     Active Substance: TREPROSTINIL
     Indication: PULMONARY ARTERIAL HYPERTENSION
     Dosage: UNK, QID
     Route: 055
     Dates: start: 20110610

REACTIONS (5)
  - Dizziness [Unknown]
  - Hypotension [Unknown]
  - Orthostatic hypotension [Unknown]
  - Presyncope [Unknown]
  - Fatigue [Unknown]

NARRATIVE: CASE EVENT DATE: 20110725
